FAERS Safety Report 15478391 (Version 1)
Quarter: 2018Q4

REPORT INFORMATION
  Report Type: Spontaneous
  Country: US (occurrence: US)
  Receive Date: 20181003
  Receipt Date: 20181003
  Transmission Date: 20190205
  Serious: No
  Sender: FDA-Public Use
  Company Number: None

PATIENT
  Age: 53 Year
  Sex: Male
  Weight: 96.75 kg

DRUGS (6)
  1. BENAZEPRIL HYDROCHLORIDE AND HYDROCHLOROTHIAZIDE [Concomitant]
     Active Substance: BENAZEPRIL HYDROCHLORIDE\HYDROCHLOROTHIAZIDE
     Dates: start: 20120101, end: 20181002
  2. HUMIRA [Suspect]
     Active Substance: ADALIMUMAB
     Indication: PSORIASIS
     Dosage: ?          OTHER FREQUENCY:EVERY 2 WEEKS;?
     Route: 058
     Dates: start: 20180705, end: 20180927
  3. ULORIC [Concomitant]
     Active Substance: FEBUXOSTAT
     Dates: start: 20170101, end: 20181002
  4. AMLODIPINE [Concomitant]
     Active Substance: AMLODIPINE BESYLATE
     Dates: start: 20170101, end: 20181002
  5. ATORVASTATIN [Concomitant]
     Active Substance: ATORVASTATIN
     Dates: start: 20180101, end: 20181002
  6. METFORMIN [Concomitant]
     Active Substance: METFORMIN HYDROCHLORIDE
     Dates: start: 20180101, end: 20181002

REACTIONS (7)
  - Irritability [None]
  - Injection site pruritus [None]
  - Injection site swelling [None]
  - Fatigue [None]
  - Discomfort [None]
  - Injection site erythema [None]
  - Injection site reaction [None]

NARRATIVE: CASE EVENT DATE: 20180705
